FAERS Safety Report 4431067-2 (Version None)
Quarter: 2004Q3

REPORT INFORMATION
  Report Type: 
  Country: None (occurrence: None)
  Receive Date: 20040817
  Receipt Date: 20040804
  Transmission Date: 20050211
  Serious: No
  Sender: FDA-Public Use
  Company Number: 2004UW16160

PATIENT
  Age: 40 Year
  Weight: 66.5 kg

DRUGS (6)
  1. SEROQUEL [Suspect]
     Indication: SCHIZOPHRENIA, PARANOID TYPE
     Dosage: 450 MG QD PO
     Route: 048
     Dates: start: 20020801
  2. SEROQUEL [Suspect]
     Indication: SCHIZOPHRENIA, PARANOID TYPE
     Dosage: 600 MG QD PO
     Route: 048
  3. CLOZAPINE [Suspect]
     Indication: SCHIZOPHRENIA
     Dosage: 720 NMOL/L
  4. CLOZARIL [Concomitant]
  5. CELEXA [Concomitant]
  6. VALPROIC ACID [Concomitant]

REACTIONS (2)
  - COLITIS ISCHAEMIC [None]
  - HAEMATOCHEZIA [None]
